FAERS Safety Report 5527599-6 (Version None)
Quarter: 2007Q4

REPORT INFORMATION
  Report Type: 
  Country: None (occurrence: None)
  Receive Date: 20071128
  Receipt Date: 20071116
  Transmission Date: 20080405
  Serious: Yes (Hospitalization)
  Sender: FDA-Public Use
  Company Number: GB-BAUSCH-2007BL004181

PATIENT
  Age: 35 Year
  Sex: Female

DRUGS (3)
  1. GENTAMICIN SULFATE [Suspect]
     Indication: URINARY TRACT INFECTION
  2. AMPICILLIN [Suspect]
     Indication: URINARY TRACT INFECTION
  3. COTRIM [Suspect]
     Indication: URINARY TRACT INFECTION

REACTIONS (1)
  - COLITIS [None]
